FAERS Safety Report 10168934 (Version 1)
Quarter: 2014Q2

REPORT INFORMATION
  Report Type: Spontaneous
  Country: CH (occurrence: CH)
  Receive Date: 20140513
  Receipt Date: 20140513
  Transmission Date: 20141212
  Serious: Yes (Other)
  Sender: FDA-Public Use
  Company Number: CH-BAYER-2014-069978

PATIENT
  Age: 72 Year
  Sex: Male

DRUGS (3)
  1. ALPHARADIN [Suspect]
     Indication: PROSTATE CANCER
     Dosage: 50 KBQ PER KG. OF BODY WEIGHT EVERY 4 WEEKS
     Route: 042
     Dates: start: 20140306, end: 20140430
  2. ALPHARADIN [Suspect]
     Indication: METASTASES TO LUNG
  3. ALPHARADIN [Suspect]
     Indication: METASTASES TO LIVER

REACTIONS (4)
  - Pancytopenia [None]
  - Thrombocytopenia [None]
  - Metastases to lung [None]
  - Metastases to liver [None]
